FAERS Safety Report 10741594 (Version 1)
Quarter: 2015Q1

REPORT INFORMATION
  Report Type: Spontaneous
  Country: US (occurrence: None)
  Receive Date: 20150123
  Receipt Date: 20150123
  Transmission Date: 20150721
  Serious: No
  Sender: FDA-Public Use
  Company Number: None

PATIENT
  Age: 13 Year
  Sex: Male
  Weight: 41.4 kg

DRUGS (4)
  1. HYPERTONIC SALINE SOLUTION [Suspect]
     Active Substance: SODIUM CHLORIDE
     Indication: AIRWAY SECRETION CLEARANCE THERAPY
     Dosage: DATES OF USE: ~2 WEEKS FOR CURRENT PRODUCT, 4, 2-4X/DAY, INHALED?
  2. ALBUTEROL MDI [Concomitant]
  3. FLOVENT [Concomitant]
     Active Substance: FLUTICASONE PROPIONATE
  4. TOBI [Concomitant]
     Active Substance: TOBRAMYCIN

REACTIONS (3)
  - Cough [None]
  - Drug intolerance [None]
  - Product substitution issue [None]

NARRATIVE: CASE EVENT DATE: 20141216
